FAERS Safety Report 10718803 (Version 2)
Quarter: 2015Q1

REPORT INFORMATION
  Report Type: Spontaneous
  Country: IT (occurrence: IT)
  Receive Date: 20150119
  Receipt Date: 20150324
  Transmission Date: 20150721
  Serious: Yes (Hospitalization)
  Sender: FDA-Public Use
  Company Number: IT-ACCORD-028077

PATIENT
  Age: 80 Year
  Sex: Male
  Weight: 82 kg

DRUGS (4)
  1. GLIMEPIRIDE. [Suspect]
     Active Substance: GLIMEPIRIDE
     Indication: TYPE 2 DIABETES MELLITUS
     Route: 048
  2. ACTOS [Concomitant]
     Active Substance: PIOGLITAZONE HYDROCHLORIDE
     Indication: TYPE 2 DIABETES MELLITUS
     Dosage: 30 MG
     Route: 048
  3. ELIQUIS [Concomitant]
     Active Substance: APIXABAN
     Indication: ATRIAL FIBRILLATION
     Dosage: 10 MG
     Route: 048
  4. LEVOXACIN [Interacting]
     Active Substance: LEVOFLOXACIN
     Indication: PNEUMONIA
     Dosage: 1000 MG DAILY
     Route: 048
     Dates: start: 20150103, end: 20150105

REACTIONS (2)
  - Hypoglycaemia [Recovered/Resolved]
  - Drug interaction [Unknown]

NARRATIVE: CASE EVENT DATE: 20150105
